FAERS Safety Report 9137631 (Version 1)
Quarter: 2013Q1

REPORT INFORMATION
  Report Type: Spontaneous
  Country: MX (occurrence: MX)
  Receive Date: 20130304
  Receipt Date: 20130304
  Transmission Date: 20140127
  Serious: No
  Sender: FDA-Public Use
  Company Number: PHHY2013MX017676

PATIENT
  Age: 63 Year
  Sex: Male

DRUGS (5)
  1. EXELON PATCH [Suspect]
     Indication: DEMENTIA ALZHEIMER^S TYPE
     Dosage: 9.5 MG, (PATCH 10 CM2), DAILY
     Route: 062
     Dates: start: 201302, end: 201302
  2. EXELON PATCH [Suspect]
     Dosage: 4.6 MG (PATCH 5 CM2), DAILY
     Route: 062
  3. DIOVAN [Suspect]
     Indication: HYPERTENSION
     Dosage: 1 DF, DAILY
  4. EUTEBROL [Concomitant]
     Indication: NERVOUS SYSTEM DISORDER
     Dosage: 2 DF, DAILY
  5. BI EUGLUCON [Concomitant]
     Indication: DIABETES MELLITUS
     Dosage: 1 DF, DAILY
     Dates: start: 2012

REACTIONS (2)
  - Skin irritation [Recovered/Resolved]
  - Rash [Recovered/Resolved]
